FAERS Safety Report 20466514 (Version 1)
Quarter: 2022Q1

REPORT INFORMATION
  Report Type: Spontaneous
  Country: US (occurrence: US)
  Receive Date: 20220213
  Receipt Date: 20220213
  Transmission Date: 20220423
  Serious: No
  Sender: FDA-Public Use
  Company Number: US-SA-SAC20220207000907

PATIENT
  Sex: Male

DRUGS (1)
  1. DUPIXENT [Suspect]
     Active Substance: DUPILUMAB
     Indication: Dermatitis atopic
     Dosage: 300 MG, QOW
     Route: 058

REACTIONS (1)
  - Product use issue [Unknown]
